FAERS Safety Report 6249595-6 (Version None)
Quarter: 2009Q2

REPORT INFORMATION
  Report Type: 
  Country: None (occurrence: None)
  Receive Date: 20090625
  Receipt Date: 20090625
  Transmission Date: 20091009
  Serious: Yes (Hospitalization)
  Sender: FDA-Public Use
  Company Number: None

PATIENT
  Age: 69 Year
  Sex: Female

DRUGS (1)
  1. AMIODARONE HCL [Suspect]
     Dosage: AMIODARONE 300 MG TWICE DAILY PO
     Route: 048

REACTIONS (3)
  - ABDOMINAL ABSCESS [None]
  - HYPERTHYROIDISM [None]
  - SPLEEN DISORDER [None]
